FAERS Safety Report 4385123-8 (Version None)
Quarter: 2004Q2

REPORT INFORMATION
  Report Type: 
  Country: None (occurrence: None)
  Receive Date: 20040624
  Receipt Date: 20040624
  Transmission Date: 20050107
  Serious: Yes (Life-Threatening)
  Sender: FDA-Public Use
  Company Number: None

PATIENT
  Age: 72 Year
  Sex: Male
  Weight: 111.2 kg

DRUGS (2)
  1. DIGOXIN [Suspect]
     Indication: ATRIAL FIBRILLATION
     Dosage: 0.25 MG DAILY ORAL
     Route: 048
  2. DIGOXIN [Suspect]
     Indication: CARDIAC FAILURE CONGESTIVE
     Dosage: 0.25 MG DAILY ORAL
     Route: 048

REACTIONS (6)
  - CHOLECYSTITIS [None]
  - CONFUSIONAL STATE [None]
  - DRUG LEVEL INCREASED [None]
  - ESCHERICHIA SEPSIS [None]
  - HEART RATE DECREASED [None]
  - LETHARGY [None]
